FAERS Safety Report 16714551 (Version 5)
Quarter: 2020Q1

REPORT INFORMATION
  Report Type: Spontaneous
  Country: DE (occurrence: DE)
  Receive Date: 20190819
  Receipt Date: 20200213
  Transmission Date: 20200409
  Serious: Yes (Other)
  Sender: FDA-Public Use
  Company Number: PHHY2019DE188505

PATIENT
  Sex: Female

DRUGS (16)
  1. RAMIPRIL. [Suspect]
     Active Substance: RAMIPRIL
     Indication: PRODUCT USED FOR UNKNOWN INDICATION
     Dosage: 1 DF, QD (1 DF, 2X/DAY (1 - 0 - 1); 1 NUMBER OF UNITS IN THE INTERVAL: 12 DEFINITION OF THE INTERVAL
     Route: 048
  2. OMEPRAZOLE. [Suspect]
     Active Substance: OMEPRAZOLE
     Indication: PRODUCT USED FOR UNKNOWN INDICATION
     Dosage: 1 DF, QD (1 DF, 2X/DAY (1 - 0 - 1))
     Route: 048
  3. SPASMOLYT [Suspect]
     Active Substance: TROSPIUM CHLORIDE
     Indication: PRODUCT USED FOR UNKNOWN INDICATION
     Dosage: 30 MG, QD (NUMBER OF SEPARATE DOSAGES: 1 NUMBER OF UNITS IN THE INTERVAL: 1 DEFINITION OF THE INTERV
     Route: 065
  4. ELIQUIS [Suspect]
     Active Substance: APIXABAN
     Indication: PRODUCT USED FOR UNKNOWN INDICATION
     Dosage: 2 DF, QD
     Route: 065
  5. APIXABAN [Suspect]
     Active Substance: APIXABAN
     Indication: CEREBROVASCULAR ACCIDENT PROPHYLAXIS
     Dosage: 2 DF (1 DOSAGE FORM, BID (1-0-1)  )
     Route: 065
  6. ROACTEMRA [Suspect]
     Active Substance: TOCILIZUMAB
     Dosage: 162 MG, QW
     Route: 065
     Dates: start: 20190618
  7. APIXABAN [Suspect]
     Active Substance: APIXABAN
     Dosage: 5 MG, QD (2.5 MILLIGRAM, BID)
     Route: 065
  8. QUENSYL [Suspect]
     Active Substance: HYDROXYCHLOROQUINE
     Indication: PRODUCT USED FOR UNKNOWN INDICATION
     Dosage: 2 DF, QD (1 DF, BID (1 - 0 - 1); 1 NUMBER OF UNITS IN THE INTERVAL: 12 DEFINITION OF THE INTERVAL)
     Route: 065
  9. ROACTEMRA [Suspect]
     Active Substance: TOCILIZUMAB
     Indication: RHEUMATOID ARTHRITIS
     Dosage: 162 MG, QW
     Route: 058
     Dates: start: 20150427
  10. VOLIBRIS [Suspect]
     Active Substance: AMBRISENTAN
     Indication: PULMONARY HYPERTENSION
     Dosage: 30 MG, QD
     Route: 048
  11. VOLIBRIS [Suspect]
     Active Substance: AMBRISENTAN
     Indication: GOUT
     Dosage: 1 DF, QD
     Route: 048
  12. SILDENAFIL CITRATE. [Suspect]
     Active Substance: SILDENAFIL CITRATE
     Indication: PULMONARY HYPERTENSION
     Dosage: 60 MG, QD
     Route: 065
  13. SPASMOLYT [Suspect]
     Active Substance: TROSPIUM CHLORIDE
     Dosage: 1 DF, QD
     Route: 065
  14. PREGABALIN. [Suspect]
     Active Substance: PREGABALIN
     Indication: PRODUCT USED FOR UNKNOWN INDICATION
     Dosage: 3 DF, QD
     Route: 065
  15. ROACTEMRA [Suspect]
     Active Substance: TOCILIZUMAB
     Dosage: 162 MG, QW
     Route: 058
     Dates: start: 20190118
  16. LYRICA [Suspect]
     Active Substance: PREGABALIN
     Indication: PRODUCT USED FOR UNKNOWN INDICATION
     Dosage: 300 MG, QD (100 MILLIGRAM, TID)
     Route: 065

REACTIONS (11)
  - Pain in extremity [Recovered/Resolved]
  - Paraesthesia [Recovered/Resolved]
  - Visual impairment [Not Recovered/Not Resolved]
  - Therapeutic product effect incomplete [Unknown]
  - Nasopharyngitis [Recovered/Resolved]
  - Oedema peripheral [Recovered/Resolved]
  - Pulmonary hypertension [Not Recovered/Not Resolved]
  - Peripheral coldness [Recovered/Resolved]
  - Ligament sprain [Recovering/Resolving]
  - Arthropathy [Unknown]
  - Arthralgia [Not Recovered/Not Resolved]

NARRATIVE: CASE EVENT DATE: 2018
